FAERS Safety Report 22603964 (Version 1)
Quarter: 2023Q2

REPORT INFORMATION
  Report Type: Spontaneous
  Country: US (occurrence: US)
  Receive Date: 20230615
  Receipt Date: 20230615
  Transmission Date: 20230721
  Serious: Yes (Death, Other)
  Sender: FDA-Public Use
  Company Number: US-BRISTOL-MYERS SQUIBB COMPANY-2023-082741

PATIENT
  Age: 42 Year
  Sex: Male

DRUGS (1)
  1. LENALIDOMIDE [Suspect]
     Active Substance: LENALIDOMIDE
     Indication: Burkitt^s lymphoma
     Dosage: FREQUENCY: 14
     Route: 048

REACTIONS (2)
  - Burkitt^s lymphoma [Fatal]
  - Off label use [Unknown]
